FAERS Safety Report 8888764 (Version 2)
Quarter: 2013Q1

REPORT INFORMATION
  Report Type: Spontaneous
  Country: US (occurrence: US)
  Receive Date: 20121106
  Receipt Date: 20130321
  Transmission Date: 20140127
  Serious: No
  Sender: FDA-Public Use
  Company Number: US-009507513-1210USA014646

PATIENT
  Sex: Female

DRUGS (7)
  1. PEGINTRON [Suspect]
     Indication: HEPATITIS C
     Dosage: UNK
     Dates: start: 20050101
  2. PEGINTRON [Suspect]
     Dosage: UNK
     Dates: start: 20121019
  3. RIBAVIRIN [Suspect]
     Indication: HEPATITIS C
     Dosage: UNK
     Dates: start: 20050101
  4. RIBAVIRIN [Suspect]
     Dosage: UNK
     Route: 048
     Dates: start: 20121019
  5. AFLURIA [Suspect]
     Indication: PROPHYLAXIS
     Dates: start: 2012, end: 2012
  6. PNEUMOCOCCAL VACCINE, POLYVALENT [Suspect]
     Indication: PROPHYLAXIS
     Dates: start: 2012, end: 2012
  7. PERTUSSIS VACCINE [Suspect]
     Indication: PROPHYLAXIS
     Dates: start: 2012, end: 2012

REACTIONS (11)
  - Pain in extremity [Unknown]
  - Influenza [Unknown]
  - Somnolence [Unknown]
  - Amnesia [Unknown]
  - Chills [Unknown]
  - Back pain [Recovering/Resolving]
  - Drug ineffective [Unknown]
  - Influenza like illness [Recovering/Resolving]
  - Skin disorder [Unknown]
  - Fatigue [Unknown]
  - Therapeutic response decreased [Unknown]
